FAERS Safety Report 19954478 (Version 1)
Quarter: 2021Q4

REPORT INFORMATION
  Report Type: Report from Study
  Country: TH (occurrence: TH)
  Receive Date: 20211014
  Receipt Date: 20211014
  Transmission Date: 20220303
  Serious: Yes (Death)
  Sender: FDA-Public Use
  Company Number: TH-NOVARTISPH-NVSC2021TH232593

PATIENT
  Sex: Male

DRUGS (1)
  1. ELTROMBOPAG OLAMINE [Suspect]
     Active Substance: ELTROMBOPAG OLAMINE
     Indication: Aplastic anaemia
     Dosage: UNK
     Route: 065

REACTIONS (5)
  - Aplastic anaemia [Fatal]
  - Oxygen saturation decreased [Fatal]
  - Respiratory arrest [Fatal]
  - Decreased immune responsiveness [Fatal]
  - Pyrexia [Fatal]
